FAERS Safety Report 19611716 (Version 5)
Quarter: 2021Q4

REPORT INFORMATION
  Report Type: Spontaneous
  Country: US (occurrence: US)
  Receive Date: 20210727
  Receipt Date: 20211014
  Transmission Date: 20220303
  Serious: No
  Sender: FDA-Public Use
  Company Number: US-BIOGEN-2021BI01028639

PATIENT
  Age: 52 Year
  Sex: Female

DRUGS (2)
  1. TYSABRI [Suspect]
     Active Substance: NATALIZUMAB
     Indication: Multiple sclerosis
     Route: 065
     Dates: start: 20101209
  2. TYSABRI [Suspect]
     Active Substance: NATALIZUMAB
     Route: 065
     Dates: start: 20081002, end: 20090409

REACTIONS (8)
  - Product dose omission issue [Unknown]
  - Vein rupture [Unknown]
  - Arthritis [Unknown]
  - Vasodilatation [Unknown]
  - Spider vein [Unknown]
  - Foot deformity [Unknown]
  - Vein disorder [Unknown]
  - Poor venous access [Not Recovered/Not Resolved]

NARRATIVE: CASE EVENT DATE: 20200701
